FAERS Safety Report 11540385 (Version 1)
Quarter: 2015Q3

REPORT INFORMATION
  Report Type: Spontaneous
  Country: US (occurrence: US)
  Receive Date: 20150923
  Receipt Date: 20150923
  Transmission Date: 20151125
  Serious: No
  Sender: FDA-Public Use
  Company Number: US-BEH-2014045014

PATIENT
  Sex: Male
  Weight: 21 kg

DRUGS (14)
  1. SINGULAIR [Concomitant]
     Active Substance: MONTELUKAST SODIUM
  2. DIPHENHYDRAMINE. [Concomitant]
     Active Substance: DIPHENHYDRAMINE
  3. LMX [Concomitant]
     Active Substance: LIDOCAINE
  4. PRIVIGEN [Suspect]
     Active Substance: HUMAN IMMUNOGLOBULIN G
     Indication: CONGENITAL HYPOGAMMAGLOBULINAEMIA
     Route: 042
  5. FLOVENT HFA [Concomitant]
     Active Substance: FLUTICASONE PROPIONATE
  6. INTUNIV [Concomitant]
     Active Substance: GUANFACINE HYDROCHLORIDE
  7. EPIPEN [Concomitant]
     Active Substance: EPINEPHRINE
  8. FLONASE [Concomitant]
     Active Substance: FLUTICASONE PROPIONATE
  9. PROAIR HFA [Concomitant]
     Active Substance: ALBUTEROL SULFATE
  10. METHYLPHENIDATE ER [Concomitant]
     Active Substance: METHYLPHENIDATE
  11. SODIUM CHLORIDE. [Concomitant]
     Active Substance: SODIUM CHLORIDE
  12. CYPROHEPTADINE. [Concomitant]
     Active Substance: CYPROHEPTADINE
  13. OMEPRAZOLE. [Concomitant]
     Active Substance: OMEPRAZOLE
  14. LIDOCAINE/PRILOCAINE [Concomitant]

REACTIONS (1)
  - Peripheral swelling [Unknown]
